FAERS Safety Report 18685030 (Version 3)
Quarter: 2021Q1

REPORT INFORMATION
  Report Type: Report from Study
  Country: CA (occurrence: CA)
  Receive Date: 20201230
  Receipt Date: 20210204
  Transmission Date: 20210419
  Serious: Yes (Other)
  Sender: FDA-Public Use
  Company Number: CA-REGENERON PHARMACEUTICALS, INC.-2020-96447

PATIENT

DRUGS (5)
  1. CEMIPLIMAB [Suspect]
     Active Substance: CEMIPLIMAB
     Indication: CERVIX CARCINOMA
     Dosage: 350 MG, Q3W
     Route: 042
     Dates: start: 20200609, end: 20200922
  2. PREDNISONE. [Concomitant]
     Active Substance: PREDNISONE
     Indication: ADVERSE EVENT
     Dosage: 25 MG, TID
     Route: 048
     Dates: start: 20200831, end: 20200904
  3. AVEENO HYDROCORTISONE ANTI ITCH CREAM [Concomitant]
     Indication: ADVERSE EVENT
     Dosage: UNK, AS NECESSARY
     Route: 061
     Dates: start: 20200817
  4. BENADRYL [Concomitant]
     Active Substance: DIPHENHYDRAMINE HYDROCHLORIDE
     Indication: ADVERSE EVENT
     Dosage: 25 MG, UNK
     Route: 048
     Dates: start: 20200831, end: 20200831
  5. HYDROCORTISONE. [Concomitant]
     Active Substance: HYDROCORTISONE
     Indication: ADVERSE EVENT
     Dosage: 1 %, Q8H
     Route: 061
     Dates: start: 20200720

REACTIONS (2)
  - Autoimmune pericarditis [Not Recovered/Not Resolved]
  - Blood creatine phosphokinase MB increased [Recovered/Resolved]

NARRATIVE: CASE EVENT DATE: 20200921
